FAERS Safety Report 6795110-8 (Version None)
Quarter: 2010Q2

REPORT INFORMATION
  Report Type: 
  Country: None (occurrence: None)
  Receive Date: 20100625
  Receipt Date: 20100625
  Transmission Date: 20101027
  Serious: Yes (Hospitalization, Other)
  Sender: FDA-Public Use
  Company Number: PHHO2009JP10206

PATIENT
  Sex: Male
  Weight: 59 kg

DRUGS (14)
  1. PLACEBO COMP-PLA+ [Suspect]
     Indication: PANCREATIC NEUROENDOCRINE TUMOUR
     Dosage: PLACEBO
     Route: 048
     Dates: start: 20080613, end: 20080818
  2. RAD 666 / RAD 001A [Suspect]
     Indication: PANCREATIC NEUROENDOCRINE TUMOUR
     Dosage: 10 MG DAILY
     Route: 048
     Dates: start: 20080821, end: 20080925
  3. RAD 666 / RAD 001A [Suspect]
     Dosage: 10 MG DAILY
     Route: 048
     Dates: start: 20081006, end: 20081225
  4. RAD 666 / RAD 001A [Suspect]
     Dosage: 10 MG DAILY
     Route: 048
     Dates: start: 20090108, end: 20090805
  5. FOIPAN [Concomitant]
     Indication: PANCREATIC DISORDER
  6. SEVEN EP [Concomitant]
     Indication: PANCREATIC DISORDER
  7. NAUZELIN [Concomitant]
     Indication: ABDOMINAL DISTENSION
  8. AMARYL [Concomitant]
     Indication: DIABETES MELLITUS
  9. MELBIN [Concomitant]
     Indication: DIABETES MELLITUS
  10. MAGLAX [Concomitant]
     Indication: CONSTIPATION
  11. ALLEGRA [Concomitant]
     Indication: RASH
  12. MIGLITOL [Concomitant]
     Indication: DIABETES MELLITUS
  13. PARIET [Concomitant]
     Indication: REFLUX OESOPHAGITIS
  14. LANTUS [Concomitant]
     Indication: DIABETES MELLITUS

REACTIONS (13)
  - BONE MARROW FAILURE [None]
  - COUGH [None]
  - DYSGEUSIA [None]
  - GASTROINTESTINAL HAEMORRHAGE [None]
  - LOCALISED OEDEMA [None]
  - MALAISE [None]
  - MALIGNANT NEOPLASM PROGRESSION [None]
  - METASTASES TO LIVER [None]
  - METASTASES TO STOMACH [None]
  - PROCTALGIA [None]
  - PULMONARY TUBERCULOSIS [None]
  - PYREXIA [None]
  - VENOUS THROMBOSIS [None]
